FAERS Safety Report 8353823-0 (Version None)
Quarter: 2012Q2

REPORT INFORMATION
  Report Type: 
  Country: None (occurrence: None)
  Receive Date: 20120511
  Receipt Date: 20111212
  Transmission Date: 20120825
  Serious: No
  Sender: FDA-Public Use
  Company Number: US-GLAXOSMITHKLINE-A0958181A

PATIENT
  Sex: Female

DRUGS (2)
  1. TYKERB [Suspect]
     Indication: PRODUCT USED FOR UNKNOWN INDICATION
     Dates: start: 20111001
  2. XELODA [Suspect]
     Indication: PRODUCT USED FOR UNKNOWN INDICATION
     Dates: start: 20111001

REACTIONS (6)
  - PAIN IN EXTREMITY [None]
  - IMPAIRED HEALING [None]
  - SKIN CHAPPED [None]
  - PAIN OF SKIN [None]
  - NASAL DRYNESS [None]
  - RHINORRHOEA [None]
